FAERS Safety Report 17899223 (Version 1)
Quarter: 2020Q2

REPORT INFORMATION
  Report Type: Spontaneous
  Country: GB (occurrence: GB)
  Receive Date: 20200615
  Receipt Date: 20200615
  Transmission Date: 20200714
  Serious: Yes (Other)
  Sender: FDA-Public Use
  Company Number: GB-AUROBINDO-AUR-APL-2020-028826

PATIENT
  Age: 22 Year
  Sex: Female
  Weight: 57.15 kg

DRUGS (1)
  1. CLARITHROMYCIN FILM-COATED TABLET [Suspect]
     Active Substance: CLARITHROMYCIN
     Indication: TONSILLITIS
     Dosage: 1 DOSAGE FORM, TWO TIMES A DAY
     Route: 048
     Dates: start: 20200524, end: 20200527

REACTIONS (8)
  - Photophobia [Unknown]
  - Abdominal pain upper [Unknown]
  - Dizziness [Unknown]
  - Back pain [Unknown]
  - Headache [Unknown]
  - Diarrhoea [Unknown]
  - Malaise [Recovered/Resolved with Sequelae]
  - Dysgeusia [Recovering/Resolving]

NARRATIVE: CASE EVENT DATE: 20200525
